FAERS Safety Report 5361706-3 (Version None)
Quarter: 2007Q2

REPORT INFORMATION
  Report Type: 
  Country: None (occurrence: None)
  Receive Date: 20070615
  Receipt Date: 20070615
  Transmission Date: 20071010
  Serious: Yes (Life-Threatening, Hospitalization)
  Sender: FDA-Public Use
  Company Number: None

PATIENT
  Age: 43 Year
  Sex: Male
  Weight: 54.4 kg

DRUGS (1)
  1. SULFADIAZINE [Suspect]
     Indication: CEREBRAL TOXOPLASMOSIS
     Dosage: 1000 MG EVERY 6 HOURS PO
     Route: 048
     Dates: start: 20070414, end: 20070426

REACTIONS (4)
  - EXCORIATION [None]
  - PAIN [None]
  - STEVENS-JOHNSON SYNDROME [None]
  - TREMOR [None]
